FAERS Safety Report 18254960 (Version 2)
Quarter: 2020Q4

REPORT INFORMATION
  Report Type: Report from Study
  Country: US (occurrence: US)
  Receive Date: 20200910
  Receipt Date: 20201013
  Transmission Date: 20210113
  Serious: Yes (Hospitalization, Other)
  Sender: FDA-Public Use
  Company Number: US-MALLINCKRODT-T201906693

PATIENT
  Sex: Male

DRUGS (2)
  1. REPOSITORY CORTICOTROPIN INJECTION [Suspect]
     Active Substance: CORTICOTROPIN
     Indication: SARCOIDOSIS
     Dosage: 80 UNITS/1 ML, 2 TIMES PER WEEK (SUN/WED)
     Route: 058
     Dates: start: 20170409, end: 2020
  2. REPOSITORY CORTICOTROPIN INJECTION [Suspect]
     Active Substance: CORTICOTROPIN
     Dosage: UNK
     Route: 065
     Dates: start: 202008

REACTIONS (19)
  - Peripheral swelling [Unknown]
  - Dyspnoea [Not Recovered/Not Resolved]
  - Energy increased [Not Recovered/Not Resolved]
  - Basal cell carcinoma [Unknown]
  - Sensitivity to weather change [Not Recovered/Not Resolved]
  - Therapeutic response shortened [Unknown]
  - Fluid retention [Unknown]
  - Fatigue [Unknown]
  - Weight increased [Unknown]
  - Insomnia [Not Recovered/Not Resolved]
  - Hypotension [Unknown]
  - Secretion discharge [Not Recovered/Not Resolved]
  - Skin neoplasm excision [Unknown]
  - Cough [Unknown]
  - Inappropriate schedule of product administration [Unknown]
  - Oxygen saturation decreased [Not Recovered/Not Resolved]
  - Discomfort [Unknown]
  - Mobility decreased [Not Recovered/Not Resolved]
  - Joint swelling [Not Recovered/Not Resolved]

NARRATIVE: CASE EVENT DATE: 2019
